FAERS Safety Report 4330657-5 (Version None)
Quarter: 2004Q2

REPORT INFORMATION
  Report Type: 
  Country: None (occurrence: None)
  Receive Date: 20040402
  Receipt Date: 20031013
  Transmission Date: 20050107
  Serious: Yes (Hospitalization)
  Sender: FDA-Public Use
  Company Number: FR-GLAXOSMITHKLINE-B0311601A

PATIENT
  Age: 54 Year
  Sex: Male
  Weight: 80 kg

DRUGS (9)
  1. ZIAGEN [Suspect]
     Indication: HIV INFECTION
     Dosage: 1TAB TWICE PER DAY
     Dates: start: 20020605, end: 20030903
  2. LAMPRENE [Suspect]
     Dosage: 3UNIT PER DAY
     Route: 048
     Dates: start: 20020915, end: 20030903
  3. EPIVIR [Concomitant]
     Indication: HIV INFECTION
  4. BACTRIM [Concomitant]
  5. RIFABUTIN [Concomitant]
  6. MYAMBUTOL [Concomitant]
  7. ZECLAR (CLARITHROMYCINE) [Concomitant]
  8. CIFLOX (CIPROFLOXACINE) [Concomitant]
  9. KALETRA [Concomitant]
     Indication: HIV INFECTION

REACTIONS (11)
  - ASTHENIA [None]
  - BLOOD CULTURE POSITIVE [None]
  - CHEST DISCOMFORT [None]
  - CHLAMYDIAL INFECTION [None]
  - DYSPNOEA [None]
  - HYPOXIA [None]
  - LUNG DISORDER [None]
  - OXYGEN SATURATION DECREASED [None]
  - PULMONARY FIBROSIS [None]
  - PYREXIA [None]
  - WEIGHT DECREASED [None]
